FAERS Safety Report 25924493 (Version 1)
Quarter: 2025Q4

REPORT INFORMATION
  Report Type: Spontaneous
  Country: US (occurrence: None)
  Receive Date: 20251012
  Receipt Date: 20251012
  Transmission Date: 20260118
  Serious: Yes (unspecified)
  Sender: FDA-CTU
  Company Number: None

PATIENT
  Age: 48 Year
  Sex: Female
  Weight: 69.75 kg

DRUGS (7)
  1. MALARONE [Suspect]
     Active Substance: ATOVAQUONE\PROGUANIL HYDROCHLORIDE
     Route: 048
  2. FROVATRIPTAN [Concomitant]
     Active Substance: FROVATRIPTAN
  3. NARATRIPTAN [Concomitant]
     Active Substance: NARATRIPTAN HYDROCHLORIDE
  4. EMGALITY [Concomitant]
     Active Substance: GALCANEZUMAB-GNLM
  5. SKYRIZI [Concomitant]
     Active Substance: RISANKIZUMAB-RZAA
  6. BOTOX [Concomitant]
     Active Substance: ONABOTULINUMTOXINA
  7. WELLBUTRIN [Concomitant]
     Active Substance: BUPROPION HYDROCHLORIDE

REACTIONS (6)
  - Urticaria [None]
  - Hypoaesthesia oral [None]
  - Hypoaesthesia oral [None]
  - Abdominal discomfort [None]
  - Diarrhoea [None]
  - Throat irritation [None]

NARRATIVE: CASE EVENT DATE: 20251010
